FAERS Safety Report 5491929-4 (Version None)
Quarter: 2007Q4

REPORT INFORMATION
  Report Type: 
  Country: None (occurrence: None)
  Receive Date: 20071022
  Receipt Date: 20070925
  Transmission Date: 20080405
  Serious: No
  Sender: FDA-Public Use
  Company Number: US-JNJFOC-20070905684

PATIENT
  Sex: Female

DRUGS (2)
  1. INVEGA [Suspect]
     Indication: DRUG USE FOR UNKNOWN INDICATION
     Route: 048
     Dates: start: 20070601, end: 20070701
  2. MULTIPLE MEDICATIONS [Concomitant]

REACTIONS (4)
  - DYSKINESIA [None]
  - HEADACHE [None]
  - MUSCLE CONTRACTURE [None]
  - TONGUE DISORDER [None]
